FAERS Safety Report 11325498 (Version 1)
Quarter: 2015Q3

REPORT INFORMATION
  Report Type: Spontaneous
  Country: US (occurrence: US)
  Receive Date: 20150731
  Receipt Date: 20150731
  Transmission Date: 20151125
  Serious: Yes (Death)
  Sender: FDA-Public Use
  Company Number: US-JNJFOC-20150715399

PATIENT
  Age: 16 Month
  Sex: Male
  Weight: 13.61 kg

DRUGS (1)
  1. CHILDRENS BENADRYL ALLERGY [Suspect]
     Active Substance: DIPHENHYDRAMINE HYDROCHLORIDE
     Indication: NASOPHARYNGITIS
     Route: 048
     Dates: start: 20150129, end: 20150129

REACTIONS (2)
  - Wrong technique in product usage process [Fatal]
  - Overdose [Fatal]

NARRATIVE: CASE EVENT DATE: 20150129
